FAERS Safety Report 9056819 (Version 2)
Quarter: 2013Q4

REPORT INFORMATION
  Report Type: Spontaneous
  Country: JP (occurrence: JP)
  Receive Date: 20130201
  Receipt Date: 20131227
  Transmission Date: 20140711
  Serious: Yes (Hospitalization)
  Sender: FDA-Public Use
  Company Number: JP-ELI_LILLY_AND_COMPANY-JP201301002552

PATIENT
  Sex: Male

DRUGS (4)
  1. ALIMTA [Suspect]
     Route: 042
  2. CISPLATIN [Concomitant]
  3. FOLIC ACID [Concomitant]
     Route: 042
  4. VITAMIN B12 [Concomitant]

REACTIONS (1)
  - Myocardial infarction [Recovering/Resolving]
